FAERS Safety Report 9624229 (Version 2)
Quarter: 2013Q4

REPORT INFORMATION
  Report Type: Spontaneous
  Country: FR (occurrence: FR)
  Receive Date: 20131015
  Receipt Date: 20131125
  Transmission Date: 20140711
  Serious: Yes (Other)
  Sender: FDA-Public Use
  Company Number: FR-PFIZER INC-2013288895

PATIENT
  Age: 80 Year
  Sex: Male
  Weight: 83 kg

DRUGS (7)
  1. ATORVASTATIN CALCIUM [Suspect]
     Indication: HYPERCHOLESTEROLAEMIA
     Dosage: 20 MG DAILY AND ONE INTAKE OF INCREASED DOSE EVERY 5 DAYS
     Dates: start: 2011, end: 201310
  2. ATORVASTATIN CALCIUM [Suspect]
     Dosage: 10 MG, DAILY
     Dates: start: 2013
  3. AMLODIPINE [Concomitant]
     Dosage: UNK
     Route: 048
  4. RAMIPRIL [Concomitant]
     Dosage: UNK
     Route: 048
  5. NEBIVOLOL [Concomitant]
     Dosage: UNK
     Route: 048
  6. SINTROM [Concomitant]
     Dosage: UNK
  7. TEMESTA [Concomitant]
     Dosage: 1 MG, UNK

REACTIONS (8)
  - Fall [Unknown]
  - Skeletal injury [Unknown]
  - Infective myositis [Unknown]
  - Tendonitis [Unknown]
  - Ventricular extrasystoles [Recovered/Resolved]
  - Tremor [Unknown]
  - Myalgia [Not Recovered/Not Resolved]
  - Pain in extremity [Unknown]
